FAERS Safety Report 8315372-5 (Version None)
Quarter: 2012Q1

REPORT INFORMATION
  Report Type: 
  Country: None (occurrence: None)
  Receive Date: 20120315
  Receipt Date: 20110117
  Transmission Date: 20120608
  Serious: Yes (Other)
  Sender: FDA-Public Use
  Company Number: PHHY2010US89456

PATIENT
  Age: 45 Year
  Sex: Female

DRUGS (5)
  1. METFORMIN HCL [Concomitant]
  2. ZOLOFT [Concomitant]
  3. SUMATRIPTAN SUCCINATE (IMITREX) [Concomitant]
  4. ZANAFLEX [Concomitant]
  5. GILENYA [Suspect]
     Dosage: 0.5 MG, QD, ORAL
     Route: 048
     Dates: start: 20101228

REACTIONS (1)
  - HEART RATE DECREASED [None]
